FAERS Safety Report 15904112 (Version 1)
Quarter: 2019Q1

REPORT INFORMATION
  Report Type: Spontaneous
  Country: US (occurrence: US)
  Receive Date: 20190204
  Receipt Date: 20190204
  Transmission Date: 20190417
  Serious: No
  Sender: FDA-Public Use
  Company Number: US-AUROBINDO-AUR-APL-2018-051187

PATIENT
  Age: 14 Month
  Sex: Male
  Weight: 10.43 kg

DRUGS (2)
  1. CEFDINIR FOR ORAL SUSPENSION 250 MG/5 ML [Suspect]
     Active Substance: CEFDINIR
     Indication: EAR INFECTION
     Dosage: 5 MILLILITER, ONCE A DAY
     Route: 048
     Dates: start: 20180915
  2. CEFDINIR FOR ORAL SUSPENSION 250 MG/5 ML [Suspect]
     Active Substance: CEFDINIR
     Dosage: 3 MILLILITER, ONCE A DAY
     Route: 048
     Dates: start: 20181005

REACTIONS (2)
  - Product storage error [Recovered/Resolved]
  - Ear infection [Recovered/Resolved]

NARRATIVE: CASE EVENT DATE: 20181005
